FAERS Safety Report 7076794-6 (Version None)
Quarter: 2010Q4

REPORT INFORMATION
  Report Type: 
  Country: None (occurrence: None)
  Receive Date: 20101029
  Receipt Date: 20101029
  Transmission Date: 20110411
  Serious: Yes (Life-Threatening)
  Sender: FDA-Public Use
  Company Number: None

PATIENT
  Sex: Female
  Weight: 56.6996 kg

DRUGS (3)
  1. LEVOTHYROXINE SODIUM [Suspect]
     Indication: THYROIDECTOMY
     Dosage: 3 MCG EVERY OTHER DAY
     Dates: start: 20101001, end: 20101018
  2. SYNTHROID [Suspect]
     Indication: NODULE
     Dosage: 12.5 EVERY DAY
     Dates: start: 20091030, end: 20100401
  3. LEVOXYL [Suspect]
     Indication: NODULE
     Dosage: 12.5 EVERY DAY
     Dates: start: 20091030, end: 20100401

REACTIONS (6)
  - DRUG INEFFECTIVE [None]
  - INSOMNIA [None]
  - IRRITABILITY [None]
  - NERVOUSNESS [None]
  - PALPITATIONS [None]
  - TACHYCARDIA [None]
